FAERS Safety Report 10798640 (Version 2)
Quarter: 2015Q1

REPORT INFORMATION
  Report Type: Spontaneous
  Country: US (occurrence: US)
  Receive Date: 20150216
  Receipt Date: 20150305
  Transmission Date: 20150721
  Serious: Yes (Other)
  Sender: FDA-Public Use
  Company Number: US-JAZZ-2015-US-001999

PATIENT
  Sex: Female

DRUGS (3)
  1. XYREM [Suspect]
     Active Substance: SODIUM OXYBATE
     Dosage: 4.5 G, BID
     Route: 048
     Dates: start: 200410
  2. XYREM [Suspect]
     Active Substance: SODIUM OXYBATE
     Dosage: 3 G, BID
     Route: 048
     Dates: start: 200408
  3. XYREM [Suspect]
     Active Substance: SODIUM OXYBATE
     Indication: SOMNOLENCE
     Dosage: 2.25 G, BID
     Route: 048
     Dates: start: 200405

REACTIONS (16)
  - Pneumonia [Unknown]
  - Muscle spasms [Unknown]
  - Weight decreased [Unknown]
  - Respiratory syncytial virus infection [Unknown]
  - Product use issue [Unknown]
  - Mycobacterium avium complex infection [Unknown]
  - Cystitis interstitial [Unknown]
  - Drug hypersensitivity [Unknown]
  - High frequency ablation [Unknown]
  - Fibromyalgia [Unknown]
  - Food allergy [Unknown]
  - Bronchiectasis [Unknown]
  - Seasonal allergy [Unknown]
  - Sleep apnoea syndrome [Unknown]
  - Chronic fatigue syndrome [Unknown]
  - Sleep paralysis [Unknown]
